FAERS Safety Report 7563616-X (Version None)
Quarter: 2011Q2

REPORT INFORMATION
  Report Type: 
  Country: None (occurrence: None)
  Receive Date: 20110621
  Receipt Date: 20110621
  Transmission Date: 20111010
  Serious: Yes (Other)
  Sender: FDA-Public Use
  Company Number: None

PATIENT
  Sex: Male
  Weight: 83.0083 kg

DRUGS (1)
  1. FENTANYL [Suspect]
     Indication: BACK PAIN
     Dosage: 25 MCG/HR 1 EVERY 3 DAYS BACK
     Dates: start: 20090101, end: 20110301

REACTIONS (12)
  - DRUG ABUSE [None]
  - MENTAL DISORDER [None]
  - ALCOHOL ABUSE [None]
  - ANGER [None]
  - MARITAL PROBLEM [None]
  - INJURY [None]
  - HALLUCINATION [None]
  - LEGAL PROBLEM [None]
  - MOOD ALTERED [None]
  - ECONOMIC PROBLEM [None]
  - EMOTIONAL DISORDER [None]
  - FAMILY STRESS [None]
